FAERS Safety Report 9289985 (Version 2)
Quarter: 2013Q4

REPORT INFORMATION
  Report Type: Report from Study
  Country: US (occurrence: US)
  Receive Date: 20130515
  Receipt Date: 20131022
  Transmission Date: 20140711
  Serious: Yes (Other)
  Sender: FDA-Public Use
  Company Number: US-JNJFOC-20130504115

PATIENT
  Age: 70 Year
  Sex: Male
  Weight: 82.56 kg

DRUGS (12)
  1. SIMPONI [Suspect]
     Indication: RHEUMATOID ARTHRITIS
     Route: 058
     Dates: start: 201304
  2. PREDNISONE [Concomitant]
     Indication: RHEUMATOID ARTHRITIS
     Route: 048
  3. COZAAR [Concomitant]
     Route: 048
  4. LIPITOR [Concomitant]
     Route: 048
  5. JANUVIA [Concomitant]
     Indication: DIABETES MELLITUS
     Route: 048
  6. METFORMIN [Concomitant]
     Route: 048
  7. FOLIC ACID [Concomitant]
     Route: 048
  8. FLOMAX [Concomitant]
     Route: 048
  9. CALCIUM [Concomitant]
  10. MULTIVIT [Concomitant]
     Route: 048
  11. ASPIRIN [Concomitant]
     Route: 048
  12. PRILOSEC [Concomitant]
     Route: 048

REACTIONS (3)
  - Local swelling [Recovering/Resolving]
  - Inappropriate schedule of drug administration [Recovered/Resolved]
  - Device malfunction [Unknown]
